FAERS Safety Report 19878624 (Version 1)
Quarter: 2021Q3

REPORT INFORMATION
  Report Type: Report from Study
  Country: ES (occurrence: ES)
  Receive Date: 20210924
  Receipt Date: 20210924
  Transmission Date: 20211014
  Serious: Yes (Other)
  Sender: FDA-Public Use
  Company Number: ES-GW PHARMA-202109ESGW04611

PATIENT

DRUGS (6)
  1. EPIDIOLEX [Suspect]
     Active Substance: CANNABIDIOL
     Indication: LENNOX-GASTAUT SYNDROME
     Dosage: 730 MILLIGRAM,  24.6 MG/KG, QD
     Route: 048
     Dates: start: 20200224
  2. VIGABATRIN. [Concomitant]
     Active Substance: VIGABATRIN
     Indication: LENNOX-GASTAUT SYNDROME
     Dosage: 1000 MILLIGRAM, QD
     Route: 048
     Dates: start: 20180503
  3. LEVETIRACETAM. [Concomitant]
     Active Substance: LEVETIRACETAM
     Indication: LENNOX-GASTAUT SYNDROME
     Dosage: 1400 MILLIGRAM, QD
     Route: 048
     Dates: start: 20180118
  4. VALPROIC ACID. [Concomitant]
     Active Substance: VALPROIC ACID
     Indication: LENNOX-GASTAUT SYNDROME
     Dosage: 800 MILLIGRAM, QD
     Route: 048
     Dates: start: 20160218
  5. BRIVARACETAM [Concomitant]
     Active Substance: BRIVARACETAM
     Indication: LENNOX-GASTAUT SYNDROME
     Dosage: 1600 MILLIGRAM, QD
     Route: 048
     Dates: start: 20171109
  6. HYDROCORTISONE. [Concomitant]
     Active Substance: HYDROCORTISONE
     Indication: LENNOX-GASTAUT SYNDROME
     Dosage: 20 MILLIGRAM, QD
     Route: 048
     Dates: start: 20180921

REACTIONS (1)
  - COVID-19 [Recovered/Resolved]

NARRATIVE: CASE EVENT DATE: 20200902
